FAERS Safety Report 7209491-4 (Version None)
Quarter: 2011Q1

REPORT INFORMATION
  Report Type: 
  Country: None (occurrence: None)
  Receive Date: 20110104
  Receipt Date: 20101223
  Transmission Date: 20110831
  Serious: Yes (Other)
  Sender: FDA-Public Use
  Company Number: PHHO2010GB19544

PATIENT
  Sex: Female
  Weight: 78.5 kg

DRUGS (1)
  1. ZOLEDRONATE [Suspect]
     Indication: METASTASES TO BONE
     Dosage: CODE NOT BROKEN
     Route: 042
     Dates: start: 20051109, end: 20091014

REACTIONS (6)
  - OSTEONECROSIS [None]
  - EXCESSIVE GRANULATION TISSUE [None]
  - GINGIVAL INFECTION [None]
  - TOOTH EXTRACTION [None]
  - LYMPHADENOPATHY [None]
  - TOOTH DISORDER [None]
